FAERS Safety Report 11696616 (Version 1)
Quarter: 2015Q4

REPORT INFORMATION
  Report Type: Report from Study
  Country: IN (occurrence: IN)
  Receive Date: 20151104
  Receipt Date: 20151104
  Transmission Date: 20160304
  Serious: Yes (Death)
  Sender: FDA-Public Use
  Company Number: PHHY2015IN143806

PATIENT
  Age: 90 Year
  Sex: Male

DRUGS (1)
  1. EXELON PATCH [Suspect]
     Active Substance: RIVASTIGMINE
     Indication: DEMENTIA ALZHEIMER^S TYPE
     Dosage: PATCH 15 CM2
     Route: 062
     Dates: start: 20130515, end: 20151010

REACTIONS (2)
  - Incorrect drug administration duration [Unknown]
  - Death [Fatal]

NARRATIVE: CASE EVENT DATE: 20151023
